FAERS Safety Report 13576604 (Version 1)
Quarter: 2017Q2

REPORT INFORMATION
  Report Type: Spontaneous
  Country: US (occurrence: US)
  Receive Date: 20170524
  Receipt Date: 20170524
  Transmission Date: 20170830
  Serious: No
  Sender: FDA-Public Use
  Company Number: None

PATIENT
  Age: 35 Year
  Sex: Female

DRUGS (1)
  1. MIRENA [Suspect]
     Active Substance: LEVONORGESTREL

REACTIONS (7)
  - Feeling abnormal [None]
  - Anxiety [None]
  - Hypoaesthesia [None]
  - Migraine [None]
  - Fatigue [None]
  - Visual impairment [None]
  - Dizziness [None]
